FAERS Safety Report 21680440 (Version 1)
Quarter: 2022Q4

REPORT INFORMATION
  Report Type: Report from Study
  Country: DE (occurrence: DE)
  Receive Date: 20221205
  Receipt Date: 20221205
  Transmission Date: 20230112
  Serious: Yes (Other)
  Sender: FDA-Public Use
  Company Number: DE-AMGEN-DEUCT2022170574

PATIENT
  Age: 59 Year
  Sex: Male

DRUGS (10)
  1. CARFILZOMIB [Suspect]
     Active Substance: CARFILZOMIB
     Indication: Plasma cell myeloma refractory
     Dosage: 20MG/M2 AND 56MG/M2 (FREQUENCY: 1, 8 AND 15 OF EACH 28 DAY)
     Route: 065
     Dates: start: 20210507
  2. IBERDOMIDE [Suspect]
     Active Substance: IBERDOMIDE
     Indication: Plasma cell myeloma refractory
     Dosage: 0.975 MILLIGRAM (1.3 MILLIGRAM) ON DAYS 1-21 OF EACH 28-DAY CYCLE
     Route: 048
     Dates: start: 20210507
  3. DEXAMETHASONE [Suspect]
     Active Substance: DEXAMETHASONE
     Indication: Plasma cell myeloma refractory
     Dosage: 1, 8, 15 AND 22 OF EACH 28 DAY CYCLE
     Route: 048
     Dates: start: 20210507
  4. ASPIRIN [Concomitant]
     Active Substance: ASPIRIN
     Indication: Thrombosis prophylaxis
     Dosage: 100 MILLIGRAM
     Route: 048
     Dates: start: 202102
  5. PANTOPRAZOLE [Concomitant]
     Active Substance: PANTOPRAZOLE
     Indication: Prophylaxis
     Dosage: 40 MILLIGRAM, QD
     Route: 048
     Dates: start: 20210303
  6. CHOLECALCIFEROL [Concomitant]
     Active Substance: CHOLECALCIFEROL
     Indication: Vitamin supplementation
     Dosage: 1000 INTERNATIONAL UNIT, QD
     Route: 048
     Dates: start: 20210303
  7. CYANOCOBALAMIN [Concomitant]
     Active Substance: CYANOCOBALAMIN
     Indication: Vitamin supplementation
     Dosage: 33.33 INTERNATIONAL UNIT, QMO
     Route: 030
     Dates: start: 20210303
  8. VALACYCLOVIR HYDROCHLORIDE [Concomitant]
     Active Substance: VALACYCLOVIR HYDROCHLORIDE
     Indication: Infection prophylaxis
     Dosage: 500 MILLIGRAM, BID
     Route: 048
     Dates: start: 20210507
  9. TILIDINE [Concomitant]
     Active Substance: TILIDINE
     Indication: Bone pain
     Dosage: UNK
     Route: 048
     Dates: start: 20210303
  10. PREDNISONE [Concomitant]
     Active Substance: PREDNISONE
     Dosage: 1 MILLIGRAM/KILOGRAM
     Dates: start: 2022

REACTIONS (1)
  - Autoimmune disorder [Recovered/Resolved]

NARRATIVE: CASE EVENT DATE: 20220808
